FAERS Safety Report 7725095-9 (Version None)
Quarter: 2011Q3

REPORT INFORMATION
  Report Type: 
  Country: None (occurrence: None)
  Receive Date: 20110901
  Receipt Date: 20110823
  Transmission Date: 20111222
  Serious: Yes (Hospitalization)
  Sender: FDA-Public Use
  Company Number: US-GILEAD-2011-0043026

PATIENT
  Sex: Male
  Weight: 75.364 kg

DRUGS (12)
  1. RITALIN [Concomitant]
     Indication: ATTENTION DEFICIT/HYPERACTIVITY DISORDER
     Dates: start: 19900101
  2. OMNARIS [Concomitant]
     Indication: NASAL CONGESTION
     Dates: start: 20050101
  3. AZTREONAM [Suspect]
     Indication: BRONCHIECTASIS
     Route: 055
     Dates: start: 20110729, end: 20110816
  4. TEKTURNA [Concomitant]
     Indication: HYPERTENSION
     Dates: start: 20090101
  5. SPIRIVA [Concomitant]
     Indication: CHRONIC OBSTRUCTIVE PULMONARY DISEASE
     Dates: start: 20080101
  6. OXYGEN [Concomitant]
     Indication: CHRONIC OBSTRUCTIVE PULMONARY DISEASE
  7. GUAIFENESIN [Concomitant]
     Indication: RESPIRATORY TRACT CONGESTION
     Dates: start: 20080101
  8. ALBUTEROL SULFATE AUTOHALER [Concomitant]
     Indication: CHRONIC OBSTRUCTIVE PULMONARY DISEASE
     Dates: start: 20080101
  9. DIOVAN [Concomitant]
     Indication: HYPERTENSION
     Dates: start: 20090101
  10. SILVER CENTRUM [Concomitant]
     Indication: PROPHYLAXIS
     Dates: start: 20080101
  11. SYMBICORT [Concomitant]
     Indication: CHRONIC OBSTRUCTIVE PULMONARY DISEASE
     Dates: start: 20110201
  12. SINGULAIR [Concomitant]

REACTIONS (1)
  - ASTHMA [None]
